FAERS Safety Report 15124961 (Version 8)
Quarter: 2018Q4

REPORT INFORMATION
  Report Type: Spontaneous
  Country: JP (occurrence: JP)
  Receive Date: 20180710
  Receipt Date: 20181122
  Transmission Date: 20190204
  Serious: Yes (Death, Hospitalization, Other)
  Sender: FDA-Public Use
  Company Number: JP-OTSUKA-2018_019221

PATIENT
  Age: 62 Year
  Sex: Female

DRUGS (26)
  1. REXULTI [Suspect]
     Active Substance: BREXPIPRAZOLE
     Indication: SCHIZOPHRENIA
     Dosage: 2 MG, DAILY DOSE
     Route: 048
     Dates: start: 20180502, end: 20180518
  2. QUETIAPINE. [Suspect]
     Active Substance: QUETIAPINE
     Indication: PRODUCT USED FOR UNKNOWN INDICATION
     Dosage: 200 MG, DAILY DOSE (VDS)
     Route: 065
     Dates: start: 20180517, end: 20180606
  3. NIFEDIPINE. [Suspect]
     Active Substance: NIFEDIPINE
     Indication: PRODUCT USED FOR UNKNOWN INDICATION
     Dosage: 1 DF, AT NOON
     Route: 065
     Dates: start: 20160208, end: 20180606
  4. LONASEN [Concomitant]
     Active Substance: BLONANSERIN
     Dosage: UNK
     Route: 065
     Dates: end: 201712
  5. AMITIZA [Concomitant]
     Active Substance: LUBIPROSTONE
     Indication: PRODUCT USED FOR UNKNOWN INDICATION
     Dosage: 48 ?G, UNK
     Route: 065
     Dates: start: 20180526, end: 20180608
  6. PAREPLUS [Concomitant]
     Active Substance: AMINO ACIDS\DEXTROSE\ELECTROLYTES NOS\VITAMINS
     Indication: PRODUCT USED FOR UNKNOWN INDICATION
     Dosage: 500 ML, UNK
     Route: 065
     Dates: start: 20180529, end: 20180608
  7. PURSENNID [Suspect]
     Active Substance: SENNOSIDES A AND B
     Indication: PRODUCT USED FOR UNKNOWN INDICATION
     Dosage: 48 MG, DAILY DOSE
     Route: 065
     Dates: start: 20180409, end: 20180606
  8. LONASEN [Concomitant]
     Active Substance: BLONANSERIN
     Indication: PRODUCT USED FOR UNKNOWN INDICATION
     Dosage: UNK
     Route: 065
     Dates: start: 2013
  9. AMOLIN [Concomitant]
     Active Substance: AMOXICILLIN
     Indication: PRODUCT USED FOR UNKNOWN INDICATION
     Dosage: 750 MG, UNK
     Route: 065
     Dates: start: 20180530, end: 20180531
  10. REXULTI [Suspect]
     Active Substance: BREXPIPRAZOLE
     Indication: STUPOR
     Dosage: 1 MG, DAILY DOSE
     Route: 048
     Dates: start: 20180425, end: 20180501
  11. FLUNITRAZEPAM [Suspect]
     Active Substance: FLUNITRAZEPAM
     Indication: PRODUCT USED FOR UNKNOWN INDICATION
     Dosage: 2 MG, VDS
     Route: 065
     Dates: end: 20180606
  12. PURSENNID [Suspect]
     Active Substance: SENNOSIDES A AND B
     Dosage: 2 DF, DALIY DOSE(VDS)
     Route: 065
     Dates: end: 20180408
  13. REZALTAS [Suspect]
     Active Substance: AZELNIDIPINE\OLMESARTAN MEDOXOMIL
     Indication: PRODUCT USED FOR UNKNOWN INDICATION
     Dosage: 1 DF, AT NOON
     Route: 065
     Dates: start: 20160214, end: 20180606
  14. LONASEN [Concomitant]
     Active Substance: BLONANSERIN
     Dosage: 16 MG, DAILY DOSE
     Route: 065
     Dates: start: 20180425, end: 20180501
  15. CRAVIT [Concomitant]
     Active Substance: LEVOFLOXACIN
     Indication: HEPATIC FUNCTION ABNORMAL
     Dosage: 500 MG, UNK
     Route: 065
     Dates: start: 20180523, end: 20180528
  16. DAIOKANZOTO [Suspect]
     Active Substance: LICORICE ROOT EXTRACT\RHUBARB
     Dosage: 6 DF, UNK
     Route: 065
     Dates: start: 20180526, end: 20180606
  17. POTACOL R [Concomitant]
     Active Substance: CALCIUM CHLORIDE\MALTOSE\POTASSIUM CHLORIDE\SODIUM CHLORIDE\SODIUM LACTATE
     Indication: PRODUCT USED FOR UNKNOWN INDICATION
     Dosage: 500 ML, UNK
     Route: 065
     Dates: start: 20180529, end: 20180608
  18. RISPERIDONE. [Concomitant]
     Active Substance: RISPERIDONE
     Indication: PRODUCT USED FOR UNKNOWN INDICATION
     Dosage: UNK, PRN FOR UNREST
     Route: 065
     Dates: start: 20180223
  19. LAXOBERON [Suspect]
     Active Substance: SODIUM PICOSULFATE
     Indication: PRODUCT USED FOR UNKNOWN INDICATION
     Dosage: 2 DF, DIVIDED INTO 2 DOSES
     Route: 065
     Dates: end: 20180606
  20. DAIOKANZOTO [Suspect]
     Active Substance: LICORICE ROOT EXTRACT\RHUBARB
     Indication: PRODUCT USED FOR UNKNOWN INDICATION
     Dosage: 4 DF, DIVIDED INTO 2 DOSES
     Route: 065
     Dates: end: 20180525
  21. CONTOMIN [Concomitant]
     Active Substance: CHLORPROMAZINE
     Indication: PRODUCT USED FOR UNKNOWN INDICATION
     Dosage: 50 MG, DAILY DOSE
     Route: 065
     Dates: end: 20180521
  22. LONASEN [Concomitant]
     Active Substance: BLONANSERIN
     Dosage: 8 MG, DAILY DOSE
     Route: 065
     Dates: start: 20180502, end: 20180509
  23. QUETIAPINE. [Suspect]
     Active Substance: QUETIAPINE
     Dosage: 300 MG, DAILY DOSE
     Route: 065
     Dates: end: 20180516
  24. REXULTI [Suspect]
     Active Substance: BREXPIPRAZOLE
     Dosage: 1 MG, DAILY DOSE
     Route: 048
     Dates: start: 20180519, end: 20180519
  25. OLANZAPINE. [Suspect]
     Active Substance: OLANZAPINE
     Indication: PRODUCT USED FOR UNKNOWN INDICATION
     Dosage: 2 DF, DAILY DOSE (VDS)
     Route: 065
     Dates: start: 20131019, end: 20180606
  26. LONASEN [Concomitant]
     Active Substance: BLONANSERIN
     Dosage: 24 MG, DAILY DOSE
     Route: 065
     Dates: start: 20180130, end: 20180424

REACTIONS (12)
  - Sepsis [Fatal]
  - Device related infection [Fatal]
  - Hepatic function abnormal [Fatal]
  - Malnutrition [Fatal]
  - Face injury [Unknown]
  - Hypoglycaemia [Unknown]
  - Hepatic failure [Fatal]
  - Nosocomial infection [Fatal]
  - Pneumonia [Fatal]
  - Fall [Not Recovered/Not Resolved]
  - Hepatic encephalopathy [Unknown]
  - Blood creatine phosphokinase increased [Unknown]

NARRATIVE: CASE EVENT DATE: 20180515
